FAERS Safety Report 5354488-2 (Version None)
Quarter: 2007Q2

REPORT INFORMATION
  Report Type: 
  Country: None (occurrence: None)
  Receive Date: 20070612
  Receipt Date: 20070606
  Transmission Date: 20071010
  Serious: Yes (Hospitalization, Other)
  Sender: FDA-Public Use
  Company Number: DE-SHR-DE-2007-019080

PATIENT
  Age: 54 Year
  Sex: Female
  Weight: 71 kg

DRUGS (10)
  1. MAGNEVIST [Suspect]
     Dosage: 40 ML, 1 DOSE
     Dates: start: 20050921, end: 20050921
  2. OMEPRAZOLE [Concomitant]
     Dosage: 20 MG, 1X/DAY
  3. ANTI-PHOSPHAT [Concomitant]
     Dosage: 1200 MG, 3X/DAY
  4. METOHEXAL Z [Concomitant]
     Dosage: 50 MG/D, UNK
  5. EINSALPHA [Concomitant]
     Dosage: 1 A?G/DAY, UNK
  6. MARCUMAR [Concomitant]
     Dosage: UNK, AS REQ'D
  7. TRAMADOL HCL [Concomitant]
     Dosage: 100 MG/D, UNK
  8. MAGNETRANS FORTE [Concomitant]
     Dosage: 150 MG/D, UNK
  9. FERRLECIT                               /GFR/ [Concomitant]
     Dosage: 40 MG, 1X/WEEK
     Route: 042
  10. NEORECORMON [Concomitant]
     Dosage: 6000 IU, 2X/WEEK
     Route: 042

REACTIONS (3)
  - FIBROSIS [None]
  - JOINT CONTRACTURE [None]
  - NEPHROGENIC FIBROSING DERMOPATHY [None]
